FAERS Safety Report 14828078 (Version 1)
Quarter: 2018Q2

REPORT INFORMATION
  Report Type: Spontaneous
  Country: US (occurrence: US)
  Receive Date: 20180406
  Receipt Date: 20180406
  Transmission Date: 20180711
  Serious: Yes (Other)
  Sender: FDA-Public Use
  Company Number: None

PATIENT
  Age: 6 Week
  Sex: Male
  Weight: 4.5 kg

DRUGS (1)
  1. BOUDREAUXS (ZINC OXIDE) [Suspect]
     Active Substance: ZINC OXIDE
     Indication: DERMATITIS DIAPER
     Dates: start: 20180317, end: 20180405

REACTIONS (3)
  - Product physical consistency issue [None]
  - Product formulation issue [None]
  - Rash [None]

NARRATIVE: CASE EVENT DATE: 20180405
